FAERS Safety Report 6331897-6 (Version None)
Quarter: 2009Q3

REPORT INFORMATION
  Report Type: 
  Country: None (occurrence: None)
  Receive Date: 20090826
  Receipt Date: 20090814
  Transmission Date: 20100115
  Serious: Yes (Hospitalization)
  Sender: FDA-Public Use
  Company Number: 8050457

PATIENT
  Age: 28 Year
  Sex: Male

DRUGS (1)
  1. CIMZIA [Suspect]
     Dates: start: 20080902

REACTIONS (3)
  - ANAL STENOSIS [None]
  - DISCOMFORT [None]
  - RECTAL STENOSIS [None]
